FAERS Safety Report 7598118-8 (Version None)
Quarter: 2011Q3

REPORT INFORMATION
  Report Type: 
  Country: None (occurrence: None)
  Receive Date: 20110708
  Receipt Date: 20110627
  Transmission Date: 20111222
  Serious: Yes (Hospitalization)
  Sender: FDA-Public Use
  Company Number: CA-US-EMD SERONO, INC.-7010534

PATIENT
  Sex: Female

DRUGS (6)
  1. PREDNISONE [Concomitant]
  2. PREDFORT EYE DROPS [Concomitant]
  3. REBIF [Suspect]
     Indication: RELAPSING-REMITTING MULTIPLE SCLEROSIS
     Dates: start: 20080926
  4. CYPRALEX [Concomitant]
     Indication: DEPRESSION
  5. SYNTHROID [Concomitant]
  6. NEVENAC EYE DROPS [Concomitant]

REACTIONS (3)
  - GALLBLADDER DISORDER [None]
  - MULTIPLE SCLEROSIS RELAPSE [None]
  - HEPATIC ENZYME INCREASED [None]
